FAERS Safety Report 6872234-8 (Version None)
Quarter: 2010Q3

REPORT INFORMATION
  Report Type: 
  Country: None (occurrence: None)
  Receive Date: 20100723
  Receipt Date: 20100716
  Transmission Date: 20110219
  Serious: Yes (Hospitalization)
  Sender: FDA-Public Use
  Company Number: JP-SANOFI-AVENTIS-2010SA027476

PATIENT
  Age: 68 Year
  Sex: Male
  Weight: 68.7 kg

DRUGS (10)
  1. PLAVIX [Suspect]
     Route: 048
     Dates: start: 20081201, end: 20100507
  2. LASIX [Suspect]
     Route: 048
     Dates: start: 20091019, end: 20100507
  3. CARVEDILOL [Suspect]
     Route: 048
     Dates: start: 20081201
  4. BUFFERIN [Suspect]
     Route: 048
     Dates: start: 20081201, end: 20100507
  5. LANSOPRAZOLE [Suspect]
     Route: 048
     Dates: start: 20081201, end: 20100507
  6. ALL OTHER THERAPEUTIC PRODUCTS [Suspect]
     Indication: HYPERTENSION
     Route: 048
     Dates: start: 20100426, end: 20100507
  7. LIPITOR [Suspect]
     Route: 048
     Dates: start: 20081201, end: 20100507
  8. EPADEL [Suspect]
     Route: 048
     Dates: start: 20081201, end: 20100507
  9. ALDACTONE [Suspect]
     Indication: HYPERTENSION
     Route: 048
     Dates: start: 20081201, end: 20100507
  10. MICARDIS [Suspect]
     Indication: HYPERTENSION
     Route: 048
     Dates: start: 20081201, end: 20100426

REACTIONS (6)
  - ASTHENIA [None]
  - BRONCHIOLITIS [None]
  - JAUNDICE [None]
  - LIVER DISORDER [None]
  - MALAISE [None]
  - PYREXIA [None]
